FAERS Safety Report 21613974 (Version 1)
Quarter: 2022Q4

REPORT INFORMATION
  Report Type: Spontaneous
  Country: KR (occurrence: KR)
  Receive Date: 20221118
  Receipt Date: 20221118
  Transmission Date: 20230113
  Serious: Yes (Other)
  Sender: FDA-Public Use
  Company Number: KR-MYLANLABS-2022M1126747

PATIENT
  Age: 77 Year
  Sex: Female
  Weight: 43 kg

DRUGS (7)
  1. LYRICA [Suspect]
     Active Substance: PREGABALIN
     Indication: Dementia Alzheimer^s type
     Dosage: 1 DOSAGE FORM, QD
     Route: 065
     Dates: start: 20190429, end: 20190611
  2. ESCITALOPRAM OXALATE [Suspect]
     Active Substance: ESCITALOPRAM OXALATE
     Indication: Prophylaxis
     Dosage: 0.5 DOSAGE FORM, QD
     Route: 065
     Dates: start: 20170220
  3. ZALTOPROFEN [Concomitant]
     Active Substance: ZALTOPROFEN
     Dosage: UNK
     Route: 065
     Dates: start: 20180402
  4. PALONOSETRON HYDROCHLORIDE [Concomitant]
     Active Substance: PALONOSETRON HYDROCHLORIDE
     Dosage: UNK
     Route: 065
     Dates: start: 20190603, end: 20190606
  5. AMBROXOL HYDROCHLORIDE [Concomitant]
     Active Substance: AMBROXOL HYDROCHLORIDE
     Dosage: UNK
     Route: 065
     Dates: start: 20190603, end: 20190606
  6. Cefminox sodium hydrate [Concomitant]
     Dosage: 2 DOSAGE FORM
     Route: 065
     Dates: start: 20190603, end: 20190612
  7. ESOMEPRAZOLE SODIUM [Concomitant]
     Active Substance: ESOMEPRAZOLE SODIUM
     Dosage: UNK
     Route: 065
     Dates: start: 20190603, end: 20190617

REACTIONS (2)
  - Altered state of consciousness [Recovered/Resolved]
  - Off label use [Unknown]

NARRATIVE: CASE EVENT DATE: 20190429
